FAERS Safety Report 5242544-9 (Version None)
Quarter: 2007Q1

REPORT INFORMATION
  Report Type: 
  Country: None (occurrence: None)
  Receive Date: 20070221
  Receipt Date: 20070213
  Transmission Date: 20070707
  Serious: Yes (Other)
  Sender: FDA-Public Use
  Company Number: AU-AVENTIS-200710964GDDC

PATIENT
  Age: 41 Year
  Sex: Female

DRUGS (2)
  1. FEXOFENADINE HCL [Suspect]
     Route: 048
  2. FEXOFENADINE HCL [Suspect]
     Route: 048

REACTIONS (2)
  - CONVULSION [None]
  - OVERDOSE [None]
